FAERS Safety Report 4332815-2 (Version None)
Quarter: 2004Q2

REPORT INFORMATION
  Report Type: 
  Country: None (occurrence: None)
  Receive Date: 20040405
  Receipt Date: 20040405
  Transmission Date: 20050107
  Serious: Yes (Death)
  Sender: FDA-Public Use
  Company Number: None

PATIENT
  Age: 65 Year
  Sex: Male
  Weight: 80.5 kg

DRUGS (25)
  1. CYCLOSPORINE [Suspect]
     Indication: ACUTE MYELOID LEUKAEMIA
     Dosage: 1288 MG PER DAY INTRAVENOUS
     Route: 042
     Dates: start: 20040305, end: 20040308
  2. DAUNORUBICIN +ARA-45MG/M2/DAY [Suspect]
     Indication: ACUTE MYELOID LEUKAEMIA
     Dosage: 88MG/92MG 3 PER DAY INTRAVENOUS
     Route: 036
     Dates: start: 20040305, end: 20040311
  3. ARA [Suspect]
     Indication: ACUTE MYELOID LEUKAEMIA
     Dosage: 392 MG PER DAY  IV
     Route: 042
     Dates: start: 20040305, end: 20040311
  4. MULTI-VITAMINS [Concomitant]
  5. TYLENOL (CAPLET) [Concomitant]
  6. ALLOPURINOL [Concomitant]
  7. IMIPENEM-CILASTATIN [Concomitant]
  8. BENADRYL [Concomitant]
  9. FLUCONAZOLE [Concomitant]
  10. ANUSOL HEMORRHOIDAL OINT [Concomitant]
  11. NYSTATIN [Concomitant]
  12. COLACE [Concomitant]
  13. VANCOMYCIN [Concomitant]
  14. COMPAZINE [Concomitant]
  15. ATIVAN [Concomitant]
  16. ZOFRAN [Concomitant]
  17. MILK OF MAGNESIA TAB [Concomitant]
  18. BIOTINE MOUTHWASH [Concomitant]
  19. ACYCLOVIR [Concomitant]
  20. MUCOSITIS MIXTURE [Concomitant]
  21. MORPHINE SULFATE [Concomitant]
  22. NEUPOGEN [Concomitant]
  23. HYDROCHLOROTHIAZIDE [Concomitant]
  24. ABELCET (NF) (AMPHOTERICIN) [Concomitant]
  25. ASPIRIN [Concomitant]

REACTIONS (18)
  - ARRHYTHMIA [None]
  - BRONCHOSCOPY ABNORMAL [None]
  - CARDIO-RESPIRATORY ARREST [None]
  - EYE HAEMORRHAGE [None]
  - FEBRILE NEUTROPENIA [None]
  - FUNGAL INFECTION [None]
  - HAEMOPTYSIS [None]
  - HAEMORRHAGE [None]
  - HERPES VIRUS INFECTION [None]
  - HYPERTROPHY [None]
  - HYPOTENSION [None]
  - OXYGEN SATURATION DECREASED [None]
  - PLEURITIC PAIN [None]
  - PROCEDURAL COMPLICATION [None]
  - PULMONARY HAEMORRHAGE [None]
  - RENAL IMPAIRMENT [None]
  - RESPIRATORY TRACT INFECTION FUNGAL [None]
  - VITREOUS FLOATERS [None]
